FAERS Safety Report 5101018-6 (Version None)
Quarter: 2006Q3

REPORT INFORMATION
  Report Type: 
  Country: None (occurrence: None)
  Receive Date: 20060906
  Receipt Date: 20060821
  Transmission Date: 20061208
  Serious: Yes (Other)
  Sender: FDA-Public Use
  Company Number: 2006R3-03364

PATIENT
  Age: 53 Year
  Sex: Male

DRUGS (5)
  1. HISTAC TABLET 150(RANITIDINE) TABLET, 150MG [Suspect]
     Indication: GASTRITIS
     Dosage: ORAL
     Route: 048
  2. TELMISARTAN [Suspect]
     Indication: HYPERTENSION
     Dosage: 80 MG, ORAL
     Route: 048
  3. ATENOLOL [Concomitant]
  4. TICLOPIDINE [Concomitant]
  5. SIMVASTATIN [Concomitant]

REACTIONS (2)
  - DIZZINESS [None]
  - TINNITUS [None]
